FAERS Safety Report 21754533 (Version 2)
Quarter: 2025Q1

REPORT INFORMATION
  Report Type: Spontaneous
  Country: US (occurrence: US)
  Receive Date: 20221220
  Receipt Date: 20250108
  Transmission Date: 20250409
  Serious: Yes (Hospitalization, Other)
  Sender: SANOFI AVENTIS
  Company Number: US-SA-SAC20221219000213

PATIENT
  Sex: Female
  Weight: 105.45 kg

DRUGS (1)
  1. DUPIXENT [Suspect]
     Active Substance: DUPILUMAB
     Indication: Dermatitis atopic
     Dosage: 300 MG, QOW
     Route: 058

REACTIONS (3)
  - Knee arthroplasty [Recovering/Resolving]
  - Hypoaesthesia [Unknown]
  - Neck surgery [Unknown]

NARRATIVE: CASE EVENT DATE: 20220101
